FAERS Safety Report 7171537-X (Version None)
Quarter: 2010Q4

REPORT INFORMATION
  Report Type: 
  Country: None (occurrence: None)
  Receive Date: 20101217
  Receipt Date: 20101213
  Transmission Date: 20110411
  Serious: Yes (Hospitalization)
  Sender: FDA-Public Use
  Company Number: US-B.I. PHARMACEUTICALS,INC./RIDGEFIELD-2010-BP-12868BP

PATIENT
  Sex: Male
  Weight: 58.97 kg

DRUGS (21)
  1. PRADAXA [Suspect]
     Dates: start: 20101101, end: 20101101
  2. ASPIRIN [Concomitant]
     Dosage: 81 MG
  3. CILOSTAZOL [Concomitant]
     Dosage: 100 MG
  4. FUROSEMIDE [Concomitant]
     Dosage: 40 MG
  5. SIMVASTATIN [Concomitant]
     Dosage: 40 MG
  6. PANTOXIFYLLINE [Concomitant]
     Dosage: 1200 MG
  7. PANTOPRAZOLE [Concomitant]
     Dosage: 40 MG
  8. DIGOXIN [Concomitant]
     Dosage: 0.125 MG
  9. CARVEDILOL [Concomitant]
     Dosage: 12.5 MG
  10. UROXATROL [Concomitant]
     Dosage: 10 MG
  11. AVODART [Concomitant]
     Dosage: 0.5 MG
  12. MULTI VIT [Concomitant]
     Dosage: 1 QD
  13. CRANBERRY [Concomitant]
     Dosage: 1 QD
  14. SUPER B COMPLEX [Concomitant]
     Dosage: 1 QD
  15. FISH OIL [Concomitant]
     Dosage: 1 QD
  16. OSTEO BI FLEX [Concomitant]
     Dosage: 1 QD
  17. TIMOLOL [Concomitant]
     Dosage: DROPS, 1 BID
  18. TRAVATAN [Concomitant]
     Dosage: DROPS, 1 QD
  19. RESTASIS [Concomitant]
     Dosage: DROPS, 1 BID
  20. FLUOROMETHOLONE [Concomitant]
     Dosage: 0.1%
  21. LISINOPRIL [Concomitant]

REACTIONS (3)
  - HAEMORRHAGE [None]
  - INTERNATIONAL NORMALISED RATIO INCREASED [None]
  - VESSEL PUNCTURE SITE HAEMORRHAGE [None]
